FAERS Safety Report 8445235-6 (Version None)
Quarter: 2012Q2

REPORT INFORMATION
  Report Type: 
  Country: None (occurrence: None)
  Receive Date: 20120618
  Receipt Date: 20120605
  Transmission Date: 20120825
  Serious: Yes (Hospitalization)
  Sender: FDA-Public Use
  Company Number: DE-ELI_LILLY_AND_COMPANY-DE201206001096

PATIENT
  Age: 50 Year
  Sex: Female

DRUGS (2)
  1. OLANZAPINE [Suspect]
     Dosage: 300 MG, MONTHLY (1/M)
     Dates: start: 20110201
  2. CARBAMAZEPINE [Concomitant]
     Dosage: UNK
     Dates: start: 20080101

REACTIONS (1)
  - PARTIAL SEIZURES [None]
